FAERS Safety Report 20855197 (Version 4)
Quarter: 2023Q4

REPORT INFORMATION
  Report Type: Report from Study
  Country: US (occurrence: US)
  Receive Date: 20220520
  Receipt Date: 20231205
  Transmission Date: 20240109
  Serious: Yes (Other)
  Sender: FDA-Public Use
  Company Number: US-TAKEDA-2022TUS011676

PATIENT
  Age: 40 Year
  Sex: Female
  Weight: 68 kg

DRUGS (3)
  1. BRIGATINIB [Suspect]
     Active Substance: BRIGATINIB
     Indication: Brain neoplasm benign
     Dosage: 90 MILLIGRAM, QD
     Route: 048
     Dates: start: 20220217
  2. BRIGATINIB [Suspect]
     Active Substance: BRIGATINIB
     Indication: Neurofibromatosis
     Dosage: 180 MILLIGRAM, QD
     Route: 048
     Dates: start: 20220228
  3. BRIGATINIB [Suspect]
     Active Substance: BRIGATINIB
     Indication: Cranial nerve neoplasm benign
     Dosage: 90 MILLIGRAM, QD
     Route: 048

REACTIONS (4)
  - Brain operation [Recovering/Resolving]
  - No adverse event [Unknown]
  - Product dose omission issue [Unknown]
  - Off label use [Unknown]

NARRATIVE: CASE EVENT DATE: 20220217
